FAERS Safety Report 13292194 (Version 1)
Quarter: 2017Q1

REPORT INFORMATION
  Report Type: Spontaneous
  Country: NL (occurrence: NL)
  Receive Date: 20170303
  Receipt Date: 20170303
  Transmission Date: 20170428
  Serious: Yes (Other)
  Sender: FDA-Public Use
  Company Number: NL-TEVA-745459ROM

PATIENT
  Sex: Male

DRUGS (1)
  1. PRAVASTATINENATRIUM PCH TABLET 20 MG [Suspect]
     Active Substance: PRAVASTATIN
     Dosage: STARTED ABOUT 1,5 YEAR AGO, STOPPED ABOUT 6 WEEKS AGO

REACTIONS (5)
  - Muscle spasms [Recovered/Resolved]
  - Epilepsy [Recovered/Resolved]
  - Dysgeusia [Recovered/Resolved]
  - Limb discomfort [Recovered/Resolved]
  - Headache [Recovered/Resolved]
